FAERS Safety Report 22078242 (Version 1)
Quarter: 2023Q1

REPORT INFORMATION
  Report Type: Spontaneous
  Country: US (occurrence: None)
  Receive Date: 20230308
  Receipt Date: 20230308
  Transmission Date: 20230418
  Serious: Yes (Other)
  Sender: FDA-Public Use
  Company Number: None

PATIENT
  Age: 11 Month
  Sex: Male
  Weight: 8.1 kg

DRUGS (2)
  1. KIDS PAIN AND FEVER [Suspect]
     Active Substance: ACETAMINOPHEN
     Dosage: OTHER QUANTITY : 3.75 ML;?
     Route: 048
     Dates: start: 20230307, end: 20230308
  2. Amoxicillin 4.6ml [Concomitant]

REACTIONS (3)
  - Urticaria [None]
  - Pyrexia [None]
  - Pain [None]

NARRATIVE: CASE EVENT DATE: 20230308
